FAERS Safety Report 18901496 (Version 1)
Quarter: 2021Q1

REPORT INFORMATION
  Report Type: Spontaneous
  Country: US (occurrence: US)
  Receive Date: 20210216
  Receipt Date: 20210216
  Transmission Date: 20210420
  Serious: No
  Sender: FDA-Public Use
  Company Number: US-PFIZER INC-2021152285

PATIENT
  Age: 64 Year
  Sex: Female

DRUGS (1)
  1. IBRANCE [Suspect]
     Active Substance: PALBOCICLIB
     Indication: NEOPLASM MALIGNANT
     Dosage: 125 MG, CYCLIC (TAKE 1 TAB PO QD FOR 21 DAYS, HTEN TAKE 7 DAYS OFF )
     Route: 048
     Dates: start: 20200220

REACTIONS (4)
  - Alopecia [Unknown]
  - Onychoclasis [Unknown]
  - Constipation [Unknown]
  - Fatigue [Unknown]
